FAERS Safety Report 9530868 (Version 1)
Quarter: 2013Q1

REPORT INFORMATION
  Report Type: Spontaneous
  Country: US (occurrence: None)
  Receive Date: 20130315
  Receipt Date: 20130315
  Transmission Date: 20140127
  Serious: Yes (Other)
  Sender: FDA-Public Use
  Company Number: US-JNJFOC-20120513145

PATIENT
  Age: 59 Year
  Sex: Male

DRUGS (3)
  1. MOTRIN [Suspect]
     Indication: PAIN
     Dosage: SINCE YEARS
  2. CODEINE (CODEINE) [Suspect]
     Dosage: SINCE YEARS
  3. PERCODAN [Suspect]
     Dosage: SINCE YEARS

REACTIONS (1)
  - Duodenal ulcer [None]
